FAERS Safety Report 14352922 (Version 3)
Quarter: 2018Q1

REPORT INFORMATION
  Report Type: Report from Study
  Country: DE (occurrence: DE)
  Receive Date: 20180104
  Receipt Date: 20180129
  Transmission Date: 20180509
  Serious: Yes (Other)
  Sender: FDA-Public Use
  Company Number: DE-BAUSCH-BL-2017-035945

PATIENT
  Age: 61 Year
  Sex: Male

DRUGS (2)
  1. CEFUROXIME. [Suspect]
     Active Substance: CEFUROXIME
     Indication: CELLULITIS
     Route: 042
  2. CLINDAMYCIN. [Suspect]
     Active Substance: CLINDAMYCIN
     Indication: CELLULITIS
     Route: 042

REACTIONS (4)
  - Alanine aminotransferase increased [Unknown]
  - Type IV hypersensitivity reaction [Recovering/Resolving]
  - Rash maculo-papular [Recovering/Resolving]
  - Gamma-glutamyltransferase increased [Unknown]
